FAERS Safety Report 10186283 (Version 2)
Quarter: 2014Q2

REPORT INFORMATION
  Report Type: Spontaneous
  Country: US (occurrence: US)
  Receive Date: 20140521
  Receipt Date: 20140521
  Transmission Date: 20141212
  Serious: Yes (Other)
  Sender: FDA-Public Use
  Company Number: PHEH2014US007809

PATIENT
  Age: 62 Year
  Sex: Female
  Weight: 56.24 kg

DRUGS (1)
  1. VIVELLE DOT [Suspect]
     Dosage: 0.025 MG, BIW
     Route: 062
     Dates: start: 20140312

REACTIONS (2)
  - Chest pain [Recovered/Resolved]
  - Palpitations [Unknown]
